FAERS Safety Report 11088068 (Version 1)
Quarter: 2015Q2

REPORT INFORMATION
  Report Type: Report from Study
  Country: US (occurrence: US)
  Receive Date: 20150504
  Receipt Date: 20150504
  Transmission Date: 20150821
  Serious: Yes (Hospitalization)
  Sender: FDA-Public Use
  Company Number: US-JNJFOC-20150422219

PATIENT
  Age: 34 Year
  Sex: Male
  Weight: 77.11 kg

DRUGS (1)
  1. REMICADE [Suspect]
     Active Substance: INFLIXIMAB
     Indication: CROHN^S DISEASE
     Dosage: 60
     Route: 042
     Dates: start: 201109, end: 201502

REACTIONS (3)
  - Pneumonia legionella [Unknown]
  - Crohn^s disease [Unknown]
  - Rash [Recovered/Resolved]

NARRATIVE: CASE EVENT DATE: 20130704
